FAERS Safety Report 6723366-6 (Version None)
Quarter: 2010Q2

REPORT INFORMATION
  Report Type: 
  Country: None (occurrence: None)
  Receive Date: 20100511
  Receipt Date: 20100427
  Transmission Date: 20101027
  Serious: Yes (Other)
  Sender: FDA-Public Use
  Company Number: AU-SOLVAY-00310002647

PATIENT
  Age: 18 Year
  Sex: Male

DRUGS (2)
  1. LUVOX [Suspect]
     Indication: DEPRESSION
     Dosage: 300 MILLIGRAM(S), ORAL
     Route: 048
  2. VALIUM [Concomitant]

REACTIONS (7)
  - ANXIETY [None]
  - DELUSION [None]
  - HALLUCINATION, AUDITORY [None]
  - HALLUCINATION, VISUAL [None]
  - HOMICIDE [None]
  - PARANOIA [None]
  - PSYCHOTIC DISORDER [None]
